FAERS Safety Report 21993478 (Version 2)
Quarter: 2023Q1

REPORT INFORMATION
  Report Type: Report from Study
  Country: US (occurrence: US)
  Receive Date: 20230215
  Receipt Date: 20230217
  Transmission Date: 20230418
  Serious: Yes (Death, Hospitalization, Other)
  Sender: FDA-Public Use
  Company Number: US-TORRENT-00012178

PATIENT
  Age: 34 Year
  Sex: Female

DRUGS (2)
  1. VENLAFAXINE [Suspect]
     Active Substance: VENLAFAXINE HYDROCHLORIDE
     Indication: Product used for unknown indication
     Dosage: UNKNOWN
     Route: 048
  2. 2,4-DINITROPHENOL [Suspect]
     Active Substance: 2,4-DINITROPHENOL
     Indication: Product used for unknown indication
     Dosage: 25 TABLETS OF 125 MG
     Route: 048

REACTIONS (6)
  - Completed suicide [Fatal]
  - Toxicity to various agents [Fatal]
  - Hyperhidrosis [Unknown]
  - Vomiting [Unknown]
  - Hyperthermia [Unknown]
  - Cardiac arrest [Fatal]
